FAERS Safety Report 9601861 (Version 2)
Quarter: 2013Q4

REPORT INFORMATION
  Report Type: Spontaneous
  Country: TW (occurrence: TW)
  Receive Date: 20131007
  Receipt Date: 20131007
  Transmission Date: 20140711
  Serious: Yes (Hospitalization, Other)
  Sender: FDA-Public Use
  Company Number: TW-ACCORD-019613

PATIENT
  Age: 58 Year
  Sex: Male

DRUGS (8)
  1. MYCOPHENOLATE MOFETIL [Suspect]
     Indication: IMMUNOSUPPRESSION
  2. TACROLIMUS [Interacting]
     Indication: IMMUNOSUPPRESSION
  3. CLARITHROMYCIN [Interacting]
     Indication: INFECTION
  4. BISOPROLOL [Concomitant]
  5. ATORVASTATIN [Concomitant]
  6. ASPIRIN [Concomitant]
  7. GLIMEPIRIDE [Concomitant]
  8. METFORMIN [Concomitant]

REACTIONS (4)
  - Drug interaction [Unknown]
  - Brucellosis [Recovered/Resolved]
  - Renal failure acute [Recovered/Resolved]
  - Drug level increased [Recovering/Resolving]
